FAERS Safety Report 6256313-4 (Version None)
Quarter: 2009Q2

REPORT INFORMATION
  Report Type: 
  Country: None (occurrence: None)
  Receive Date: 20090630
  Receipt Date: 20090630
  Transmission Date: 20091009
  Serious: Yes (Disabling)
  Sender: FDA-Public Use
  Company Number: None

PATIENT
  Age: 21 Year
  Sex: Female
  Weight: 65.7716 kg

DRUGS (2)
  1. WARFARIN SODIUM [Suspect]
     Indication: PULMONARY EMBOLISM
     Dosage: 1/2 TAB DAILY PO
     Route: 048
     Dates: start: 20090611, end: 20090618
  2. WARFARIN SODIUM [Suspect]
     Indication: PULMONARY EMBOLISM
     Dosage: 1 TAB DAILY PO
     Route: 048
     Dates: start: 20090611, end: 20090618

REACTIONS (6)
  - GAIT DISTURBANCE [None]
  - JOINT SWELLING [None]
  - PAIN IN EXTREMITY [None]
  - PETECHIAE [None]
  - RASH MACULAR [None]
  - SKIN DISCOLOURATION [None]
